FAERS Safety Report 18695171 (Version 1)
Quarter: 2021Q1

REPORT INFORMATION
  Report Type: Spontaneous
  Country: US (occurrence: US)
  Receive Date: 20210104
  Receipt Date: 20210104
  Transmission Date: 20210419
  Serious: Yes (Hospitalization)
  Sender: FDA-Public Use
  Company Number: US-PFIZER INC-2020513306

PATIENT
  Age: 70 Year
  Sex: Female
  Weight: 72.57 kg

DRUGS (3)
  1. XELJANZ [Suspect]
     Active Substance: TOFACITINIB CITRATE
     Indication: RHEUMATOID ARTHRITIS
     Dosage: 10 MG, DAILY (TOOK 2 PILLS A DAY, ONE IN THE MORNING AND ONE IN NIGHT)
  2. TRAMADOL. [Concomitant]
     Active Substance: TRAMADOL
     Indication: PAIN
     Dosage: 50 MG, 3X/DAY
  3. SULFASALAZINE. [Concomitant]
     Active Substance: SULFASALAZINE
     Indication: ABDOMINAL DISCOMFORT
     Dosage: 500 MG, 4X/DAY

REACTIONS (2)
  - Urinary tract infection [Unknown]
  - Herpes zoster [Unknown]

NARRATIVE: CASE EVENT DATE: 2018
